FAERS Safety Report 16994520 (Version 2)
Quarter: 2019Q4

REPORT INFORMATION
  Report Type: Report from Study
  Country: GB (occurrence: GB)
  Receive Date: 20191105
  Receipt Date: 20191209
  Transmission Date: 20200122
  Serious: Yes (Other)
  Sender: FDA-Public Use
  Company Number: GB-BRISTOL-MYERS SQUIBB COMPANY-BMS-2018-121825

PATIENT
  Age: 71 Year
  Sex: Female

DRUGS (1)
  1. ABATACEPT [Suspect]
     Active Substance: ABATACEPT
     Indication: RHEUMATOID ARTHRITIS
     Dosage: 125 MILLIGRAM, QWK
     Route: 058
     Dates: start: 201901

REACTIONS (10)
  - Throat irritation [Unknown]
  - Oral mucosal blistering [Unknown]
  - Pain [Unknown]
  - Toothache [Unknown]
  - Device malfunction [Unknown]
  - Malaise [Unknown]
  - Ankle fracture [Unknown]
  - Rheumatoid arthritis [Recovered/Resolved]
  - Lower respiratory tract infection [Recovered/Resolved]
  - Pharyngeal erythema [Unknown]

NARRATIVE: CASE EVENT DATE: 2019
